FAERS Safety Report 5936326-X (Version None)
Quarter: 2008Q4

REPORT INFORMATION
  Report Type: 
  Country: None (occurrence: None)
  Receive Date: 20081029
  Receipt Date: 20081029
  Transmission Date: 20090506
  Serious: Yes (Life-Threatening, Other)
  Sender: FDA-Public Use
  Company Number: None

PATIENT
  Age: 65 Year
  Sex: Male
  Weight: 129.2752 kg

DRUGS (2)
  1. CHANTIX [Suspect]
     Indication: SMOKING CESSATION THERAPY
     Dosage: 1-3 DAYS/4-7 DAYS .5MG: 1-DAY/2-DAY PO; DAY 8 TO END -2 WKS- 1MG 2-DAY PO
     Route: 048
     Dates: start: 20071125, end: 20071202
  2. CHANTIX [Suspect]
     Indication: SMOKING CESSATION THERAPY
     Dosage: 1-3 DAYS/4-7 DAYS .5MG: 1-DAY/2-DAY PO; DAY 8 TO END -2 WKS- 1MG 2-DAY PO
     Route: 048
     Dates: start: 20071203, end: 20071209

REACTIONS (14)
  - ABNORMAL DREAMS [None]
  - ANXIETY [None]
  - ARTHRALGIA [None]
  - ASTHENIA [None]
  - DEPRESSION [None]
  - FEELING COLD [None]
  - FLUID RETENTION [None]
  - FRUSTRATION [None]
  - IMPAIRED WORK ABILITY [None]
  - INSOMNIA [None]
  - MUSCULOSKELETAL PAIN [None]
  - POOR PERIPHERAL CIRCULATION [None]
  - SUICIDAL IDEATION [None]
  - WEIGHT DECREASED [None]
